FAERS Safety Report 7874365-2 (Version None)
Quarter: 2011Q4

REPORT INFORMATION
  Report Type: 
  Country: None (occurrence: None)
  Receive Date: 20111030
  Receipt Date: 20110519
  Transmission Date: 20120403
  Serious: No
  Sender: FDA-Public Use
  Company Number: US-AMGEN-USASP2011026087

PATIENT
  Age: 48 Year
  Sex: Female

DRUGS (1)
  1. ENBREL [Suspect]
     Indication: RHEUMATOID ARTHRITIS
     Dosage: 50 MG, QWK
     Dates: start: 20100101

REACTIONS (8)
  - MALAISE [None]
  - EYE PRURITUS [None]
  - NAUSEA [None]
  - EYE INFLAMMATION [None]
  - WEIGHT DECREASED [None]
  - LACRIMATION INCREASED [None]
  - COUGH [None]
  - THROAT IRRITATION [None]
